FAERS Safety Report 5733103-X (Version None)
Quarter: 2008Q2

REPORT INFORMATION
  Report Type: 
  Country: None (occurrence: None)
  Receive Date: 20080507
  Receipt Date: 20080425
  Transmission Date: 20081010
  Serious: Yes (Hospitalization)
  Sender: FDA-Public Use
  Company Number: 190004L08FRA

PATIENT
  Age: 36 Year
  Sex: Female

DRUGS (4)
  1. MENOTROPHIN (MENOTROPHIN) [Suspect]
     Indication: IN VITRO FERTILISATION
     Dates: start: 19900401
  2. MENOTROPHIN (MENOTROPHIN) [Suspect]
     Indication: IN VITRO FERTILISATION
     Dates: start: 19900401
  3. CHORIONIC GONADTROPIN [Suspect]
     Indication: IN VITRO FERTILISATION
     Dates: start: 19900401
  4. CHORIONIC GONADTROPIN [Suspect]
     Indication: IN VITRO FERTILISATION
     Dates: start: 19900401

REACTIONS (6)
  - ABORTION SPONTANEOUS [None]
  - EMBOLISM [None]
  - INTERMITTENT CLAUDICATION [None]
  - INTESTINAL INFARCTION [None]
  - MULTIPLE PREGNANCY [None]
  - THROMBOSIS [None]
